FAERS Safety Report 4431791-1 (Version None)
Quarter: 2004Q3

REPORT INFORMATION
  Report Type: 
  Country: None (occurrence: None)
  Receive Date: 20040819
  Receipt Date: 20040816
  Transmission Date: 20050211
  Serious: Yes (Hospitalization)
  Sender: FDA-Public Use
  Company Number: DEWYE974516AUG04

PATIENT
  Age: 48 Year
  Sex: Female

DRUGS (3)
  1. EFFEXOR XR [Suspect]
     Dosage: 50 CAPSULES (OVERDOSE AMOUNT 7500MG)
     Route: 048
     Dates: start: 20040815, end: 20040815
  2. OPIRAMOL (OPIRAMOL, , 0) [Suspect]
     Dosage: 34 TABLETS (OVERDOSE AMOUNT 3400MG)
     Route: 048
     Dates: start: 20040815, end: 20040815
  3. ALPRAZOLAM [Suspect]
     Dosage: 44 TABLETS (OVERDOSE AMOUNT 44MG)
     Route: 048

REACTIONS (5)
  - BLOOD PRESSURE SYSTOLIC DECREASED [None]
  - COMA [None]
  - MULTIPLE DRUG OVERDOSE INTENTIONAL [None]
  - RESPIRATORY DEPRESSION [None]
  - UNRESPONSIVE TO PAIN STIMULI [None]
